FAERS Safety Report 8298428-5 (Version None)
Quarter: 2012Q2

REPORT INFORMATION
  Report Type: 
  Country: None (occurrence: None)
  Receive Date: 20120419
  Receipt Date: 20120413
  Transmission Date: 20120825
  Serious: Yes (Hospitalization)
  Sender: FDA-Public Use
  Company Number: US-BAYER-2011-114309

PATIENT
  Age: 26 Year
  Sex: Female
  Weight: 116.1 kg

DRUGS (8)
  1. AZITHROMYCIN [Concomitant]
     Dosage: 250 MG,PAK TAB
  2. YAZ [Suspect]
     Dosage: UNK
     Dates: start: 20070601, end: 20090401
  3. JANUMET [Concomitant]
     Dosage: 50-1000 TAB
  4. PRAVASTATIN [Concomitant]
     Dosage: 20 MG, UNK
  5. JANUMET [Concomitant]
     Dosage: 50/1000 UNK, BID
     Route: 048
  6. LISINOPRIL [Concomitant]
     Dosage: 5 MG DAILY
     Route: 048
  7. CARBINOXAMINE MALEATE [Concomitant]
     Dosage: 4 MG TAB
  8. PRAVASTATIN [Concomitant]
     Dosage: 20 MG, HS
     Route: 048

REACTIONS (4)
  - DEEP VEIN THROMBOSIS [None]
  - PAIN [None]
  - PULMONARY EMBOLISM [None]
  - INJURY [None]
